FAERS Safety Report 8517988-X (Version None)
Quarter: 2012Q3

REPORT INFORMATION
  Report Type: 
  Country: None (occurrence: None)
  Receive Date: 20120718
  Receipt Date: 20120710
  Transmission Date: 20120928
  Serious: Yes (Hospitalization)
  Sender: FDA-Public Use
  Company Number: PL-ASTELLAS-2012US003572

PATIENT
  Sex: Female
  Weight: 19 kg

DRUGS (2)
  1. TAFEN [Concomitant]
     Indication: ASTHMA
     Dosage: 400 UG, BID
     Route: 055
     Dates: start: 20100101
  2. TACROLIMUS [Suspect]
     Indication: DERMATITIS ATOPIC
     Dosage: 0.03 %, BID
     Route: 061
     Dates: start: 20071120

REACTIONS (3)
  - HOSPITALISATION [None]
  - OFF LABEL USE [None]
  - IMMUNE TOLERANCE INDUCTION [None]
